FAERS Safety Report 9143193 (Version 1)
Quarter: 2013Q1

REPORT INFORMATION
  Report Type: Spontaneous
  Country: US (occurrence: US)
  Receive Date: 20130306
  Receipt Date: 20130306
  Transmission Date: 20140127
  Serious: No
  Sender: FDA-Public Use
  Company Number: US-ENDO PHARMACEUTICALS INC.-OPER20100212

PATIENT
  Age: 57 Year
  Sex: Male

DRUGS (5)
  1. OPANA ER [Suspect]
     Indication: SPINAL COLUMN STENOSIS
     Route: 048
     Dates: start: 2008
  2. OPANA ER [Suspect]
     Indication: NECK PAIN
  3. DULCOLAX [Suspect]
     Indication: COLONOSCOPY
     Route: 048
     Dates: start: 20101128
  4. HYDROMORPHONE [Suspect]
     Indication: BREAKTHROUGH PAIN
     Route: 048
  5. OPANA [Suspect]
     Indication: BREAKTHROUGH PAIN
     Dosage: UNK
     Route: 048

REACTIONS (5)
  - Pain [Recovering/Resolving]
  - Neck pain [Recovering/Resolving]
  - Drug effect decreased [Not Recovered/Not Resolved]
  - Syncope [Recovering/Resolving]
  - Vomiting [Recovering/Resolving]
